FAERS Safety Report 9518805 (Version 2)
Quarter: 2013Q3

REPORT INFORMATION
  Report Type: Spontaneous
  Country: US (occurrence: US)
  Receive Date: 20130912
  Receipt Date: 20130912
  Transmission Date: 20140515
  Serious: No
  Sender: FDA-Public Use
  Company Number: US-ABBOTT-13P-163-1108192-00

PATIENT
  Age: 15 Year
  Sex: Female
  Weight: 95.34 kg

DRUGS (1)
  1. DEPAKOTE SPRINKLE [Suspect]
     Indication: BIPOLAR DISORDER

REACTIONS (2)
  - Incorrect dose administered [Unknown]
  - Drug level increased [Unknown]
